FAERS Safety Report 14770890 (Version 2)
Quarter: 2018Q2

REPORT INFORMATION
  Report Type: Spontaneous
  Country: IT (occurrence: IT)
  Receive Date: 20180417
  Receipt Date: 20180425
  Transmission Date: 20180711
  Serious: Yes (Other)
  Sender: FDA-Public Use
  Company Number: IT-GILEAD-2018-0332643

PATIENT
  Age: 85 Year
  Sex: Male

DRUGS (1)
  1. EPCLUSA [Suspect]
     Active Substance: SOFOSBUVIR\VELPATASVIR
     Indication: CHRONIC HEPATITIS C
     Dosage: 1 DF, QD
     Route: 065
     Dates: start: 20180320, end: 20180410

REACTIONS (7)
  - Arthralgia [Recovered/Resolved]
  - Insomnia [Recovered/Resolved]
  - Pancreatic disorder [Recovered/Resolved]
  - Disorientation [Recovered/Resolved]
  - Pyrexia [Unknown]
  - Renal impairment [Recovered/Resolved]
  - Dyspnoea [Recovered/Resolved]

NARRATIVE: CASE EVENT DATE: 20180411
